FAERS Safety Report 5810679-5 (Version None)
Quarter: 2008Q3

REPORT INFORMATION
  Report Type: 
  Country: None (occurrence: None)
  Receive Date: 20080710
  Receipt Date: 20080625
  Transmission Date: 20090109
  Serious: Yes (Life-Threatening, Hospitalization)
  Sender: FDA-Public Use
  Company Number: 2008BI010624

PATIENT
  Age: 42 Year
  Sex: Female
  Weight: 58.9676 kg

DRUGS (6)
  1. TYSABRI [Suspect]
     Indication: MULTIPLE SCLEROSIS
     Dosage: 300 MG; QM; IV
     Route: 042
     Dates: start: 20071017, end: 20071219
  2. DIAZEPAM [Concomitant]
  3. CARBAMAZEPINE  PREMARIN TRAMADOL  CELEXA [Concomitant]
  4. PREMARIN [Concomitant]
  5. TRAMADOL HCL [Concomitant]
  6. CELEXA [Concomitant]

REACTIONS (3)
  - CHOLECYSTITIS ACUTE [None]
  - CHOLECYSTITIS INFECTIVE [None]
  - POST PROCEDURAL PNEUMONIA [None]
